FAERS Safety Report 9254414 (Version 2)
Quarter: 2013Q2

REPORT INFORMATION
  Report Type: Spontaneous
  Country: AU (occurrence: AU)
  Receive Date: 20130425
  Receipt Date: 20130602
  Transmission Date: 20140414
  Serious: Yes (Life-Threatening, Hospitalization)
  Sender: FDA-Public Use
  Company Number: AU-BRISTOL-MYERS SQUIBB COMPANY-18811455

PATIENT
  Age: 34 Year
  Sex: Female
  Weight: 86 kg

DRUGS (11)
  1. DASATINIB [Suspect]
     Indication: ACUTE LYMPHOCYTIC LEUKAEMIA
     Dosage: THERAPY STARTED WITH 140 MG AND REDUCED TO 100MG.?70MG.INTER:03MAR13.RESTART:18MAR13
     Dates: start: 20121217, end: 20130303
  2. CYTARABINE [Suspect]
     Indication: ACUTE LYMPHOCYTIC LEUKAEMIA
     Dosage: IV: 19TH FEBRUARY TO 21ST FEBRUARY?IT:FROM 01-MAR-2013
     Route: 042
  3. METHOTREXATE [Suspect]
     Indication: ACUTE LYMPHOCYTIC LEUKAEMIA
     Dosage: IV: FROM 19TH FEBRUARY?IT: FROM 20-FEB-2013
     Route: 042
  4. CYCLOPHOSPHAMIDE [Suspect]
     Indication: ACUTE LYMPHOCYTIC LEUKAEMIA
  5. DEXAMETHASONE [Suspect]
     Indication: ACUTE LYMPHOCYTIC LEUKAEMIA
  6. DOXORUBICIN HCL [Suspect]
     Indication: ACUTE LYMPHOCYTIC LEUKAEMIA
  7. VINCRISTINE [Suspect]
     Indication: ACUTE LYMPHOCYTIC LEUKAEMIA
  8. METHYLPREDNISOLONE [Suspect]
     Route: 042
  9. ACICLOVIR [Concomitant]
  10. PANTOPRAZOLE [Concomitant]
  11. POSACONAZOLE [Concomitant]

REACTIONS (6)
  - Sepsis [Unknown]
  - Pancytopenia [Unknown]
  - Confusional state [Unknown]
  - Headache [Recovered/Resolved]
  - Blindness transient [Recovered/Resolved]
  - Intracranial pressure increased [Unknown]
